FAERS Safety Report 18420661 (Version 1)
Quarter: 2020Q4

REPORT INFORMATION
  Report Type: Report from Study
  Country: MX (occurrence: MX)
  Receive Date: 20201023
  Receipt Date: 20201023
  Transmission Date: 20210114
  Serious: Yes (Other)
  Sender: FDA-Public Use
  Company Number: NVSC2020MX285567

PATIENT
  Sex: Female
  Weight: 62 kg

DRUGS (1)
  1. ENTRESTO [Suspect]
     Active Substance: SACUBITRIL\VALSARTAN
     Indication: CARDIAC FAILURE CHRONIC
     Dosage: UNK, Q12H (EVERY 12 HOURS)
     Route: 048
     Dates: start: 20170626, end: 20170904

REACTIONS (2)
  - Erythema multiforme [Recovered/Resolved]
  - Cough [Recovered/Resolved]
